FAERS Safety Report 11120572 (Version 1)
Quarter: 2015Q2

REPORT INFORMATION
  Report Type: Spontaneous
  Country: PE (occurrence: PE)
  Receive Date: 20150519
  Receipt Date: 20150519
  Transmission Date: 20150821
  Serious: Yes (Hospitalization)
  Sender: FDA-Public Use
  Company Number: PE-ROCHE-1578235

PATIENT
  Sex: Female

DRUGS (1)
  1. MABTHERA [Suspect]
     Active Substance: RITUXIMAB
     Indication: PRODUCT USED FOR UNKNOWN INDICATION
     Dosage: LAST DOSE: 20NOV2013 (2ND APPLICATION FROM 2ND CYCLE)
     Route: 042
     Dates: start: 20131030, end: 20131120

REACTIONS (1)
  - Systemic lupus erythematosus [Recovered/Resolved]
